FAERS Safety Report 14005827 (Version 1)
Quarter: 2017Q3

REPORT INFORMATION
  Report Type: Other
  Country: JP (occurrence: JP)
  Receive Date: 20170923
  Receipt Date: 20170923
  Transmission Date: 20171128
  Serious: Yes (Life-Threatening)
  Sender: FDA-Public Use
  Company Number: JP-ALSI-201700321

PATIENT
  Age: 3 Month
  Sex: Male

DRUGS (1)
  1. 100% OXYGEN [Suspect]
     Active Substance: OXYGEN
     Indication: HYPOXIA
     Route: 055

REACTIONS (1)
  - Interstitial lung disease [Recovering/Resolving]
